FAERS Safety Report 26043444 (Version 1)
Quarter: 2025Q4

REPORT INFORMATION
  Report Type: Report from Study
  Country: EU (occurrence: EU)
  Receive Date: 20251113
  Receipt Date: 20251113
  Transmission Date: 20260117
  Serious: Yes (Hospitalization)
  Sender: SERVIER
  Company Number: EU-SERVIER-S25016245

PATIENT

DRUGS (11)
  1. PEGASPARGASE [Suspect]
     Active Substance: PEGASPARGASE
     Indication: Acute lymphocytic leukaemia
     Dosage: UNK, UNKNOWN
     Route: 042
     Dates: start: 20191024, end: 20191223
  2. METHOTREXATE [Suspect]
     Active Substance: METHOTREXATE
     Indication: Acute lymphocytic leukaemia
     Dosage: 12 MG, D8, D32
     Route: 037
     Dates: start: 20200507, end: 20200622
  3. CYTARABINE [Suspect]
     Active Substance: CYTARABINE
     Indication: Acute lymphocytic leukaemia
     Dosage: 30 MG, D8, D32
     Route: 037
     Dates: start: 20200507, end: 20200622
  4. CYTARABINE [Suspect]
     Active Substance: CYTARABINE
     Dosage: 104 MG,  (D31 TO D34, D38 TO D41
     Route: 042
     Dates: start: 20200622
  5. HYDROCORTISONE [Suspect]
     Active Substance: HYDROCORTISONE
     Indication: Acute lymphocytic leukaemia
     Dosage: 15 MG, D8, D32
     Route: 037
     Dates: start: 20200507, end: 20200622
  6. VINCRISTINE [Suspect]
     Active Substance: VINCRISTINE
     Indication: Acute lymphocytic leukaemia
     Dosage: 2 MG, D1, D8, D15, D22
     Route: 042
     Dates: start: 20200504, end: 20200525
  7. DEXAMETHASONE [Suspect]
     Active Substance: DEXAMETHASONE
     Indication: Acute lymphocytic leukaemia
     Dosage: 13.8 MG, D1 TO D7, D15 TO D21
     Route: 048
     Dates: start: 20200504, end: 20200524
  8. CYCLOPHOSPHAMIDE [Suspect]
     Active Substance: CYCLOPHOSPHAMIDE
     Indication: Acute lymphocytic leukaemia
     Dosage: 1380 MG, D29
     Route: 042
     Dates: start: 20200619, end: 20200619
  9. THIOGUANINE [Suspect]
     Active Substance: THIOGUANINE
     Indication: Acute lymphocytic leukaemia
     Dosage: 83 MG, D29 TO D42
     Route: 048
     Dates: start: 20200619
  10. ERWINASE [Suspect]
     Active Substance: ASPARAGINASE ERWINIA CHRYSANTHEMI
     Indication: Acute lymphocytic leukaemia
     Dosage: 27600 IU, D8, D10, D12, D14, D16, D18, D20
     Route: 042
     Dates: start: 20200507, end: 20200520
  11. DOXORUBICIN [Suspect]
     Active Substance: DOXORUBICIN
     Indication: Acute lymphocytic leukaemia
     Dosage: 41.5 MG, D8, D10, D12, D14, D16, D18, D20
     Route: 042
     Dates: start: 20200504, end: 20200525

REACTIONS (2)
  - Vomiting [Recovered/Resolved]
  - Somnolence [Recovered/Resolved]

NARRATIVE: CASE EVENT DATE: 20200622
